FAERS Safety Report 15293281 (Version 1)
Quarter: 2018Q3

REPORT INFORMATION
  Report Type: Spontaneous
  Country: US (occurrence: US)
  Receive Date: 20180820
  Receipt Date: 20180820
  Transmission Date: 20181010
  Serious: No
  Sender: FDA-Public Use
  Company Number: PHEH2018US033360

PATIENT
  Sex: Female

DRUGS (1)
  1. AFINITOR [Suspect]
     Active Substance: EVEROLIMUS
     Indication: THYROID CANCER
     Route: 065

REACTIONS (27)
  - Glomerular filtration rate decreased [Unknown]
  - Mean cell volume decreased [Unknown]
  - Diarrhoea [Unknown]
  - Haemoptysis [Unknown]
  - Cough [Unknown]
  - Dry mouth [Unknown]
  - Eyelid oedema [Unknown]
  - Dysphonia [Unknown]
  - Interferon gamma release assay [Unknown]
  - Haematocrit decreased [Unknown]
  - Neutrophil count increased [Unknown]
  - Hypertension [Unknown]
  - Blood thyroid stimulating hormone decreased [Unknown]
  - Thyroxine free increased [Unknown]
  - Blood lactate dehydrogenase increased [Unknown]
  - Back pain [Unknown]
  - Monocyte count increased [Unknown]
  - Eosinophil count increased [Unknown]
  - Dysphagia [Unknown]
  - Epistaxis [Unknown]
  - Wheezing [Unknown]
  - Haemoglobin decreased [Unknown]
  - Blood creatinine increased [Unknown]
  - Vitamin D decreased [Unknown]
  - Mean cell haemoglobin decreased [Unknown]
  - Lymphocyte count decreased [Unknown]
  - Fatigue [Unknown]
